FAERS Safety Report 6010198-X (Version None)
Quarter: 2008Q4

REPORT INFORMATION
  Report Type: 
  Country: None (occurrence: None)
  Receive Date: 20081218
  Receipt Date: 20071102
  Transmission Date: 20090506
  Serious: No
  Sender: FDA-Public Use
  Company Number: A0691250A

PATIENT
  Age: 79 Year
  Sex: Female

DRUGS (17)
  1. FLONASE [Suspect]
     Dosage: 1SPR TWICE PER DAY
     Route: 045
  2. LIPITOR [Concomitant]
  3. PREMARIN [Concomitant]
  4. SYNTHROID [Concomitant]
  5. ZIAC [Concomitant]
  6. ACIPHEX [Concomitant]
  7. DEMEROL [Concomitant]
  8. SEPTRA [Concomitant]
  9. AZITHROMYCIN [Concomitant]
  10. PENICILLIN [Concomitant]
  11. SULFA [Concomitant]
  12. CODEINE SUL TAB [Concomitant]
  13. PERCODAN-DEMI [Concomitant]
  14. IMIPRAMINE [Concomitant]
  15. DARVON [Concomitant]
  16. KEFLEX [Concomitant]
  17. UNKNOWN MEDICATION [Concomitant]

REACTIONS (1)
  - LACRIMATION INCREASED [None]
